FAERS Safety Report 8120439-0 (Version None)
Quarter: 2012Q1

REPORT INFORMATION
  Report Type: 
  Country: None (occurrence: None)
  Receive Date: 20120203
  Receipt Date: 20120120
  Transmission Date: 20120608
  Serious: Yes (Other)
  Sender: FDA-Public Use
  Company Number: 2012S1000018

PATIENT
  Age: 11 Day
  Sex: Male
  Weight: 0.84 kg

DRUGS (17)
  1. AMPICILLIN [Concomitant]
  2. FENTANYL [Concomitant]
  3. KETAMINE HYDROCHLORIDE [Concomitant]
  4. NORMAL-SERUM-ALBUMIN (HUMAN) [Concomitant]
  5. ATROPINE [Concomitant]
  6. INOMAX [Suspect]
     Indication: BRONCHOPULMONARY DYSPLASIA
     Dosage: 20 PPM; CONT; INH
     Route: 055
     Dates: start: 20120118, end: 20120119
  7. EPINEPHRINE [Concomitant]
  8. SODIUM BICARDBONATE [Concomitant]
  9. AMPLICILLIN [Concomitant]
  10. FUROSEMIDE [Concomitant]
  11. FLUCONAZOLE [Concomitant]
  12. CEFOTAXIME [Concomitant]
  13. VANCOMYCIN [Concomitant]
  14. ROCURONIUM BROMIDE [Concomitant]
  15. CAFFEINE CITRATE [Concomitant]
  16. INDOCIN [Concomitant]
  17. VERSED [Concomitant]

REACTIONS (7)
  - CARDIAC MURMUR [None]
  - PATENT DUCTUS ARTERIOSUS [None]
  - OLIGURIA [None]
  - PNEUMOTHORAX [None]
  - ACIDOSIS [None]
  - SEPSIS [None]
  - HYPOTENSION [None]
